FAERS Safety Report 16339950 (Version 1)
Quarter: 2019Q2

REPORT INFORMATION
  Report Type: Spontaneous
  Country: SE (occurrence: SE)
  Receive Date: 20190521
  Receipt Date: 20190521
  Transmission Date: 20190711
  Serious: Yes (Life-Threatening)
  Sender: FDA-Public Use
  Company Number: SE-TEVA-2019-SE-1051835

PATIENT
  Age: 76 Year
  Sex: Male

DRUGS (21)
  1. GANFORT [Concomitant]
     Active Substance: BIMATOPROST\TIMOLOL
  2. FURIX (FUROSEMIDE) [Concomitant]
     Active Substance: FUROSEMIDE
  3. NORADRENALINE [Concomitant]
     Active Substance: NOREPINEPHRINE
  4. PULMICORT TURBUHALER [Concomitant]
     Active Substance: BUDESONIDE
  5. INNOHEP [Concomitant]
     Active Substance: TINZAPARIN SODIUM
  6. PROPOFOL. [Concomitant]
     Active Substance: PROPOFOL
  7. NICOTINELL [Concomitant]
     Active Substance: NICOTINE
  8. NATRIUMKLORID [Concomitant]
     Active Substance: SODIUM CHLORIDE
  9. ACTRAPID [Concomitant]
     Active Substance: INSULIN HUMAN
  10. MILRINONE [Concomitant]
     Active Substance: MILRINONE
     Dates: start: 20190329, end: 20190404
  11. PARACETAMOL [Concomitant]
     Active Substance: ACETAMINOPHEN
  12. KETOGAN [Concomitant]
  13. CELOCURIN [Concomitant]
     Active Substance: SUCCINYLCHOLINE CHLORIDE
     Dosage: ALL PREPARATIONS DURING USE DAYS BEFORE AND AFTER REACTION.?ONLY EXCEPTION CELOKURIN GIVEN IN THE
  14. REMIFENTANIL [Concomitant]
     Active Substance: REMIFENTANIL
  15. PIPERACILLIN/TAZOBACTAM [Concomitant]
     Active Substance: PIPERACILLIN SODIUM\TAZOBACTAM SODIUM
  16. KALIUMKLORID [Concomitant]
  17. ESOMEPRAZOLE. [Concomitant]
     Active Substance: ESOMEPRAZOLE MAGNESIUM
  18. ADRENALINE [Concomitant]
     Active Substance: EPINEPHRINE
  19. ATROVENT [Concomitant]
     Active Substance: IPRATROPIUM BROMIDE
  20. DEXMEDETOMIDINE. [Suspect]
     Active Substance: DEXMEDETOMIDINE
     Indication: SEDATIVE THERAPY
     Dosage: MCG MCG/KG/H
     Route: 042
     Dates: start: 20190330, end: 20190401
  21. SELOKEN [Concomitant]
     Active Substance: METOPROLOL

REACTIONS (1)
  - Hyperthermia [Unknown]

NARRATIVE: CASE EVENT DATE: 20190331
